FAERS Safety Report 5106524-6 (Version None)
Quarter: 2006Q3

REPORT INFORMATION
  Report Type: 
  Country: None (occurrence: None)
  Receive Date: 20060731
  Receipt Date: 20060123
  Transmission Date: 20061208
  Serious: Yes (Hospitalization)
  Sender: FDA-Public Use
  Company Number: US-JNJFOC-20060105453

PATIENT
  Age: 51 Year
  Sex: Female
  Weight: 108.8633 kg

DRUGS (8)
  1. RISPERDAL [Suspect]
     Indication: SCHIZOAFFECTIVE DISORDER
     Dosage: 1 MG, 2 IN 1 DAY, ORAL
     Route: 048
     Dates: start: 20050302, end: 20050306
  2. LITHIUM () LITHIUM [Concomitant]
  3. KLONOPIN [Concomitant]
  4. ATIVAN [Concomitant]
  5. CALCIUM W/VITAMIN D (CALCIUM WITH VITAMIN D) [Concomitant]
  6. DETROL [Concomitant]
  7. CENTRUM SILVER (CENTRUM SILVER) [Concomitant]
  8. VESICARE (ALL OTHER THERAPEUTIC PRODUCTS) [Concomitant]

REACTIONS (1)
  - SCHIZOAFFECTIVE DISORDER [None]
